FAERS Safety Report 23230780 (Version 2)
Quarter: 2024Q1

REPORT INFORMATION
  Report Type: Spontaneous
  Country: US (occurrence: US)
  Receive Date: 20231127
  Receipt Date: 20240308
  Transmission Date: 20240409
  Serious: Yes (Other)
  Sender: FDA-Public Use
  Company Number: US-BAYER-2023A167735

PATIENT
  Age: 52 Year
  Sex: Male

DRUGS (7)
  1. ASPIRIN [Suspect]
     Active Substance: ASPIRIN
     Indication: Antiplatelet therapy
     Dosage: 81 MG, QD
     Route: 048
     Dates: start: 20190910, end: 20190911
  2. ASPIRIN [Suspect]
     Active Substance: ASPIRIN
     Indication: Pericarditis
     Dosage: 650 MG, BID
  3. TICAGRELOR [Suspect]
     Active Substance: TICAGRELOR
     Indication: Antiplatelet therapy
     Dosage: 90 MG
     Dates: start: 20190910, end: 20190916
  4. HEPARIN [Suspect]
     Active Substance: HEPARIN SODIUM
     Dosage: UNK
     Dates: start: 20190910, end: 20191010
  5. HYDROXYUREA [Concomitant]
     Active Substance: HYDROXYUREA
     Indication: Myelosuppression
  6. CLOPIDOGREL [Concomitant]
     Active Substance: CLOPIDOGREL BISULFATE
     Dosage: 75 MG, QD
  7. ASPIRIN [Concomitant]
     Active Substance: ASPIRIN
     Dosage: 650 MG
     Dates: start: 20190911, end: 20190916

REACTIONS (3)
  - Haematuria [Recovered/Resolved]
  - Catheter site haemorrhage [Recovered/Resolved]
  - Off label use [None]

NARRATIVE: CASE EVENT DATE: 20190910
